FAERS Safety Report 5801340-1 (Version None)
Quarter: 2008Q3

REPORT INFORMATION
  Report Type: 
  Country: None (occurrence: None)
  Receive Date: 20080703
  Receipt Date: 20080703
  Transmission Date: 20090109
  Serious: Yes (Life-Threatening)
  Sender: FDA-Public Use
  Company Number: None

PATIENT
  Age: 59 Year
  Sex: Male

DRUGS (4)
  1. CHLORHEXIDINE GLUCONATE [Suspect]
     Indication: PNEUMONIA
     Dates: start: 20080619
  2. CHLORHEXIDINE GLUCONATE [Suspect]
     Indication: SEPSIS
     Dates: start: 20080619
  3. CHLORHEXIDINE GLUCONATE [Suspect]
     Indication: PNEUMONIA
     Dates: start: 20080627
  4. CHLORHEXIDINE GLUCONATE [Suspect]
     Indication: SEPSIS
     Dates: start: 20080627

REACTIONS (3)
  - BURKHOLDERIA CEPACIA INFECTION [None]
  - PNEUMONIA [None]
  - SEPSIS [None]
